FAERS Safety Report 11859882 (Version 2)
Quarter: 2016Q2

REPORT INFORMATION
  Report Type: Spontaneous
  Country: US (occurrence: US)
  Receive Date: 20151222
  Receipt Date: 20160506
  Transmission Date: 20160815
  Serious: Yes (Disabling)
  Sender: FDA-Public Use
  Company Number: US-ENDO PHARMACEUTICALS INC.-2015-005073

PATIENT
  Sex: Male
  Weight: 113.5 kg

DRUGS (7)
  1. LISINOPRIL HCTZ [Concomitant]
     Active Substance: HYDROCHLOROTHIAZIDE\LISINOPRIL
     Indication: BLOOD PRESSURE MEASUREMENT
     Route: 065
     Dates: start: 2010
  2. TESTIM [Suspect]
     Active Substance: TESTOSTERONE
     Indication: ANDROGEN REPLACEMENT THERAPY
     Route: 062
  3. ANDROGEL [Suspect]
     Active Substance: TESTOSTERONE
     Dosage: 1 TO 4 PUMPS PER DAY (VARIED)
     Route: 065
     Dates: start: 201201, end: 201406
  4. ANDROGEL [Suspect]
     Active Substance: TESTOSTERONE
     Indication: ANDROGEN REPLACEMENT THERAPY
     Dosage: ^1 PACKET PER DAY^
     Route: 065
     Dates: start: 2006, end: 201003
  5. LIPITOR [Concomitant]
     Active Substance: ATORVASTATIN CALCIUM
     Indication: BLOOD CHOLESTEROL
     Route: 065
     Dates: start: 2010
  6. FORTESTA [Suspect]
     Active Substance: TESTOSTERONE
     Indication: ANDROGEN REPLACEMENT THERAPY
     Route: 061
  7. ANDROGEL [Suspect]
     Active Substance: TESTOSTERONE
     Dosage: 4 PUMPS PER DAY
     Route: 065
     Dates: start: 201101, end: 201112

REACTIONS (7)
  - Pain [Unknown]
  - Eye disorder [Not Recovered/Not Resolved]
  - Emotional distress [Unknown]
  - Quality of life decreased [Unknown]
  - Blindness unilateral [Not Recovered/Not Resolved]
  - General physical health deterioration [Unknown]
  - Arthropathy [Unknown]

NARRATIVE: CASE EVENT DATE: 2012
